FAERS Safety Report 5279437-7 (Version None)
Quarter: 2007Q1

REPORT INFORMATION
  Report Type: 
  Country: None (occurrence: None)
  Receive Date: 20070328
  Receipt Date: 20070314
  Transmission Date: 20070707
  Serious: Yes (Hospitalization)
  Sender: FDA-Public Use
  Company Number: ZA-ELI_LILLY_AND_COMPANY-ZA200702005089

PATIENT
  Age: 54 Year
  Sex: Female

DRUGS (7)
  1. CYMBALTA [Suspect]
     Indication: MAJOR DEPRESSION
     Dosage: 60 MG, DAILY (1/D)
     Route: 048
     Dates: start: 20050901, end: 20060901
  2. CYMBALTA [Suspect]
     Dosage: 30 MG, DAILY (1/D)
     Route: 048
     Dates: start: 20060901, end: 20061101
  3. ZOPITAN [Concomitant]
     Indication: INSOMNIA
     Dosage: 7.5 MG, EACH EVENING
     Route: 048
  4. LIPITOR [Concomitant]
     Indication: BLOOD CHOLESTEROL INCREASED
     Dosage: 10 MG, EACH MORNING
     Route: 048
  5. ESTROFEM [Concomitant]
     Indication: HORMONE REPLACEMENT THERAPY
     Dosage: 1 MG, DAILY (1/D)
     Route: 048
  6. NEXIAM                                  /BEL/ [Concomitant]
     Indication: DYSPEPSIA
     Dosage: 20 MG, EACH MORNING
     Route: 048
  7. ECOTRIN [Concomitant]
     Indication: PROPHYLAXIS
     Dosage: 81 MG, DAILY (1/D)
     Route: 048

REACTIONS (2)
  - CONSTIPATION [None]
  - HAEMORRHOIDS [None]
